FAERS Safety Report 8941414 (Version 2)
Quarter: 2013Q1

REPORT INFORMATION
  Report Type: Spontaneous
  Country: US (occurrence: US)
  Receive Date: 20121203
  Receipt Date: 20130117
  Transmission Date: 20140127
  Serious: No
  Sender: FDA-Public Use
  Company Number: US-PFIZER INC-2012302092

PATIENT
  Age: 75 Year
  Sex: Female
  Weight: 96.15 kg

DRUGS (6)
  1. LYRICA [Suspect]
     Indication: BACK PAIN
     Dosage: 75 MG, 1X/DAY
     Route: 048
     Dates: start: 201211, end: 20121128
  2. LYRICA [Suspect]
     Indication: ARTHRALGIA
  3. GABAPENTIN [Concomitant]
     Indication: BACK PAIN
     Dosage: UNK, 3X/DAY
     Dates: start: 20121129
  4. GABAPENTIN [Concomitant]
     Indication: ARTHRALGIA
  5. QUINAPRIL [Concomitant]
     Indication: HYPERTENSION
     Dosage: UNK
  6. ALPRAZOLAM [Concomitant]
     Indication: NEUROPATHY PERIPHERAL
     Dosage: UNK
     Route: 048
     Dates: start: 2010

REACTIONS (3)
  - Arthritis [Unknown]
  - Therapeutic response unexpected [Unknown]
  - Dizziness [Unknown]
